FAERS Safety Report 15883487 (Version 1)
Quarter: 2019Q1

REPORT INFORMATION
  Report Type: Spontaneous
  Country: DE (occurrence: DE)
  Receive Date: 20190129
  Receipt Date: 20190129
  Transmission Date: 20190417
  Serious: Yes (Hospitalization)
  Sender: FDA-Public Use
  Company Number: DE-ACCORD-103745

PATIENT
  Age: 65 Year
  Sex: Female
  Weight: 100 kg

DRUGS (5)
  1. FLUOROURACIL. [Suspect]
     Active Substance: FLUOROURACIL
     Indication: PRODUCT USED FOR UNKNOWN INDICATION
     Dosage: EVERY 15 DAYS OVER 24 HOURS
     Route: 042
  2. OXALIPLATIN. [Concomitant]
     Active Substance: OXALIPLATIN
     Dosage: EVERY 15 DAYS
     Route: 042
  3. L-THYROX [Concomitant]
     Active Substance: LEVOTHYROXINE SODIUM
     Dosage: 100 UG, 1-0-0
     Route: 048
  4. LEUCOVORIN. [Concomitant]
     Active Substance: LEUCOVORIN
     Dosage: EVERY 15 DAYS
     Route: 042
  5. DOCETAXEL. [Concomitant]
     Active Substance: DOCETAXEL
     Dosage: EVERY 15 DAYS
     Route: 042

REACTIONS (3)
  - Diarrhoea [Unknown]
  - Pyrexia [Unknown]
  - Malaise [Unknown]
